FAERS Safety Report 8953499 (Version 1)
Quarter: 2012Q4

REPORT INFORMATION
  Report Type: 
  Country: BG (occurrence: BG)
  Receive Date: 20121206
  Receipt Date: 20121206
  Transmission Date: 20130627
  Serious: Yes (Life-Threatening, Hospitalization)
  Sender: FDA-Public Use
  Company Number: BG-GLAXOSMITHKLINE-B0849693A

PATIENT
  Age: 3 Month
  Sex: Male

DRUGS (1)
  1. VENTOLIN [Suspect]
     Indication: COUGH
     Dosage: 15ML per day
     Route: 065
     Dates: start: 20121121, end: 20121121

REACTIONS (7)
  - Poisoning [Recovered/Resolved]
  - Tachycardia [Recovered/Resolved]
  - Discomfort [Recovered/Resolved]
  - Crying [Recovered/Resolved]
  - Telangiectasia [Recovered/Resolved]
  - Hypertension [Recovered/Resolved]
  - Overdose [Recovered/Resolved]
